FAERS Safety Report 5315996-3 (Version None)
Quarter: 2007Q2

REPORT INFORMATION
  Report Type: 
  Country: None (occurrence: None)
  Receive Date: 20070427
  Receipt Date: 20070423
  Transmission Date: 20071010
  Serious: Yes (Hospitalization)
  Sender: FDA-Public Use
  Company Number: 232669K07USA

PATIENT
  Age: 46 Year
  Sex: Female

DRUGS (5)
  1. REBIF [Suspect]
     Indication: MULTIPLE SCLEROSIS
     Dosage: 44 MCG, 3 IN 1 WEEKS, SUBCUTANEOUS
     Route: 058
     Dates: start: 20050425
  2. ATENOLOL [Concomitant]
  3. ANTIBIOTICS (ANTIBIOTICS) [Concomitant]
  4. IBUPROFEN [Concomitant]
  5. GABAPENTIN [Concomitant]

REACTIONS (3)
  - CHEST DISCOMFORT [None]
  - HERPES ZOSTER [None]
  - INFECTION [None]
